FAERS Safety Report 4648206-0 (Version None)
Quarter: 2005Q2

REPORT INFORMATION
  Report Type: 
  Country: None (occurrence: None)
  Receive Date: 20050331
  Receipt Date: 20050110
  Transmission Date: 20051028
  Serious: No
  Sender: FDA-Public Use
  Company Number: 05P-163-0285862-00

PATIENT
  Age: 81 Year
  Sex: Female
  Weight: 72.5755 kg

DRUGS (10)
  1. HUMIRA [Suspect]
     Indication: RHEUMATOID ARTHRITIS
     Dosage: 40 MG, SUBCUTANEOUS
     Route: 058
     Dates: start: 20040101, end: 20041201
  2. CLONIDINE [Concomitant]
  3. DILTIAZEM HYDROCHLORIDE [Concomitant]
  4. IRBESARTAN [Concomitant]
  5. DYAZIDE [Concomitant]
  6. LEVOTHYROXINE SODIUM [Concomitant]
  7. RABEPRAZOLE SODIUM [Concomitant]
  8. PREDNISONE TAB [Concomitant]
  9. SERETIDE MITE [Concomitant]
  10. ZOLPIDEM TARTRATE [Concomitant]

REACTIONS (4)
  - CYSTITIS [None]
  - DEPRESSION [None]
  - PARAESTHESIA [None]
  - RESPIRATORY TRACT INFECTION [None]
